FAERS Safety Report 5279887-9 (Version None)
Quarter: 2007Q1

REPORT INFORMATION
  Report Type: 
  Country: None (occurrence: None)
  Receive Date: 20061215
  Receipt Date: 20060327
  Transmission Date: 20070707
  Serious: Yes (Death)
  Sender: FDA-Public Use
  Company Number: HQWYE554428MAR06

PATIENT
  Age: 44 Year
  Sex: Male
  Weight: 95.34 kg

DRUGS (3)
  1. EFFEXOR XR [Suspect]
     Indication: DEPRESSION
     Dosage: ORAL
     Route: 048
     Dates: start: 20060127, end: 20060127
  2. DILANTIN KAPSEAL [Concomitant]
  3. TRAZODONE HCL [Concomitant]

REACTIONS (3)
  - AGITATION [None]
  - COMPLETED SUICIDE [None]
  - INTENTIONAL OVERDOSE [None]
